FAERS Safety Report 6608035-5 (Version None)
Quarter: 2010Q1

REPORT INFORMATION
  Report Type: 
  Country: None (occurrence: None)
  Receive Date: 20100226
  Receipt Date: 20100226
  Transmission Date: 20100710
  Serious: No
  Sender: FDA-Public Use
  Company Number: None

PATIENT
  Age: 25 Year
  Sex: Male
  Weight: 77.1115 kg

DRUGS (6)
  1. HALOPERIDOL [Suspect]
     Dosage: 5MG IM
     Route: 030
  2. CARDIZEM [Concomitant]
  3. MUTLITVITAMIN [Concomitant]
  4. ARIPIPRAZOLE [Concomitant]
  5. CITALOPRAM HYDROBROMIDE [Concomitant]
  6. LAMOTRIGINE [Concomitant]

REACTIONS (2)
  - LIMB DISCOMFORT [None]
  - MUSCLE SPASMS [None]
